FAERS Safety Report 22516534 (Version 1)
Quarter: 2023Q2

REPORT INFORMATION
  Report Type: Spontaneous
  Country: US (occurrence: US)
  Receive Date: 20230603
  Receipt Date: 20230603
  Transmission Date: 20230721
  Serious: Yes (Hospitalization, Other)
  Sender: FDA-Public Use
  Company Number: US-SPECGX-T202301286

PATIENT
  Age: 32 Year
  Sex: Female

DRUGS (1)
  1. METHADONE [Suspect]
     Active Substance: METHADONE HYDROCHLORIDE
     Indication: Drug dependence
     Dosage: UNK
     Route: 065

REACTIONS (8)
  - Intussusception [Unknown]
  - Narcotic bowel syndrome [Unknown]
  - Gastrointestinal necrosis [Unknown]
  - Small intestinal obstruction [Unknown]
  - Small intestinal resection [Unknown]
  - Laparotomy [Unknown]
  - Tachycardia [Unknown]
  - Substance use [Unknown]
